FAERS Safety Report 4874781-7 (Version None)
Quarter: 2006Q1

REPORT INFORMATION
  Report Type: 
  Country: None (occurrence: None)
  Receive Date: 20060104
  Receipt Date: 20060104
  Transmission Date: 20060701
  Serious: No
  Sender: FDA-Public Use
  Company Number: None

PATIENT
  Sex: Female
  Weight: 63.5036 kg

DRUGS (2)
  1. CLONAZEPAM 1 MG. CARACO /CAREMARK [Suspect]
     Indication: INSOMNIA
     Dosage: 1 MG 2 AT BEDTIME PO
     Route: 048
     Dates: start: 20060101, end: 20060102
  2. LORAZEPAM 1 MG. RANBAXY/CAREMARK [Suspect]
     Indication: INSOMNIA
     Dosage: 1 MG 2 AT BEDTIME PO
     Route: 048
     Dates: start: 20060101, end: 20060102

REACTIONS (2)
  - DRUG INEFFECTIVE [None]
  - POOR QUALITY DRUG ADMINISTERED [None]
